FAERS Safety Report 4740504-5 (Version None)
Quarter: 2005Q3

REPORT INFORMATION
  Report Type: 
  Country: None (occurrence: None)
  Receive Date: 20050810
  Receipt Date: 20050803
  Transmission Date: 20060218
  Serious: Yes (Life-Threatening, Hospitalization)
  Sender: FDA-Public Use
  Company Number: 200517053GDDC

PATIENT
  Age: 72 Year
  Sex: Female

DRUGS (5)
  1. ARAVA [Suspect]
     Indication: RHEUMATOID ARTHRITIS
     Route: 048
     Dates: start: 20030101, end: 20050714
  2. KETOROLAC [Concomitant]
     Indication: RHEUMATOID ARTHRITIS
     Route: 048
     Dates: end: 20050714
  3. ALENDRONATE [Concomitant]
     Indication: RHEUMATOID ARTHRITIS
     Route: 048
     Dates: end: 20050714
  4. PREDNISONE [Concomitant]
     Route: 048
     Dates: start: 20050714, end: 20050722
  5. CHLOROQUINE PHOSPHATE [Concomitant]
     Indication: RHEUMATOID ARTHRITIS
     Route: 048
     Dates: start: 20050714

REACTIONS (14)
  - ABDOMINAL PAIN [None]
  - BLOOD BILIRUBIN INCREASED [None]
  - CHOLANGITIS [None]
  - CHOLELITHIASIS [None]
  - HAEMATEMESIS [None]
  - HAEMOGLOBIN DECREASED [None]
  - HEPATIC ENZYME INCREASED [None]
  - HEPATOTOXICITY [None]
  - JAUNDICE [None]
  - MELAENA [None]
  - PANCYTOPENIA [None]
  - PLATELET COUNT DECREASED [None]
  - UPPER GASTROINTESTINAL HAEMORRHAGE [None]
  - WHITE BLOOD CELL COUNT DECREASED [None]
